FAERS Safety Report 6955860-7 (Version None)
Quarter: 2010Q3

REPORT INFORMATION
  Report Type: 
  Country: None (occurrence: None)
  Receive Date: 20100830
  Receipt Date: 20100816
  Transmission Date: 20110219
  Serious: Yes (Death, Other)
  Sender: FDA-Public Use
  Company Number: DE-ROCHE-721879

PATIENT

DRUGS (3)
  1. CAPECITABINE [Suspect]
     Route: 065
  2. DOCETAXEL [Suspect]
     Dosage: EVERY OTHER WEEK
     Route: 065
  3. CISPLATIN [Suspect]
     Dosage: EVERY OTHER WEEK
     Route: 065

REACTIONS (4)
  - DEATH [None]
  - GASTROINTESTINAL DISORDER [None]
  - GENERAL PHYSICAL HEALTH DETERIORATION [None]
  - PALMAR-PLANTAR ERYTHRODYSAESTHESIA SYNDROME [None]
